FAERS Safety Report 9302752 (Version 2)
Quarter: 2013Q3

REPORT INFORMATION
  Report Type: Report from Study
  Country: US (occurrence: US)
  Receive Date: 20130522
  Receipt Date: 20130708
  Transmission Date: 20140515
  Serious: Yes (Other)
  Sender: FDA-Public Use
  Company Number: PHEH2013US011120

PATIENT
  Age: 83 Year
  Sex: Male

DRUGS (9)
  1. GLEEVEC [Suspect]
     Indication: CHRONIC MYELOID LEUKAEMIA
     Dosage: 400 MG, QD
     Route: 048
     Dates: start: 201210
  2. SINGULAIR [Concomitant]
  3. CADUET [Concomitant]
     Dosage: UNK UKN, UNK
  4. TAMSULOSIN HCL [Concomitant]
     Dosage: UNK UKN, UNK
  5. FINASTERIDE [Concomitant]
     Dosage: UNK UKN, UNK
  6. ASPIRIN (E.C.) [Concomitant]
     Dosage: UNK UKN, UNK
  7. NEXIUM-MUPS//ESOMEPRAZOLE MAGNESIUM [Concomitant]
     Dosage: UNK UKN, UNK
  8. CALCIUM + VITAMIN D3 [Concomitant]
     Dosage: UNK UKN, UNK
  9. METAMUCIL [Concomitant]

REACTIONS (2)
  - Lower respiratory tract infection [Unknown]
  - Musculoskeletal pain [Unknown]
